FAERS Safety Report 22161086 (Version 1)
Quarter: 2023Q1

REPORT INFORMATION
  Report Type: Spontaneous
  Country: None (occurrence: US)
  Receive Date: 20230331
  Receipt Date: 20230331
  Transmission Date: 20230418
  Serious: No
  Sender: FDA-Public Use
  Company Number: US-Ascend Therapeutics US, LLC-2139755

PATIENT
  Sex: Male

DRUGS (3)
  1. ANDROGEL 1% [Suspect]
     Active Substance: TESTOSTERONE
     Indication: Product used for unknown indication
     Route: 061
  2. TESTOSTERONE [Suspect]
     Active Substance: TESTOSTERONE
     Route: 061
  3. ANDRODERM [Suspect]
     Active Substance: TESTOSTERONE
     Route: 065

REACTIONS (1)
  - Unevaluable event [Unknown]
